FAERS Safety Report 11361259 (Version 1)
Quarter: 2015Q3

REPORT INFORMATION
  Report Type: Spontaneous
  Country: AU (occurrence: AU)
  Receive Date: 20150810
  Receipt Date: 20150810
  Transmission Date: 20151125
  Serious: Yes (Hospitalization)
  Sender: FDA-Public Use
  Company Number: AU-BAYER-2015-392729

PATIENT
  Sex: Male

DRUGS (2)
  1. GADOVIST [Suspect]
     Active Substance: GADOBUTROL
     Dosage: UNK
     Dates: start: 20150731, end: 20150731
  2. OMNIPAQUE [Suspect]
     Active Substance: IOHEXOL
     Dosage: UNK
     Dates: start: 20150731, end: 20150731

REACTIONS (2)
  - Pneumothorax [None]
  - Cough [None]

NARRATIVE: CASE EVENT DATE: 20150731
